FAERS Safety Report 13833845 (Version 3)
Quarter: 2021Q1

REPORT INFORMATION
  Report Type: Spontaneous
  Country: US (occurrence: US)
  Receive Date: 20170804
  Receipt Date: 20210305
  Transmission Date: 20210419
  Serious: Yes (Life-Threatening, Hospitalization, Other)
  Sender: FDA-Public Use
  Company Number: US-AUROBINDO-AUR-APL-2017-38135

PATIENT
  Age: 19 Year
  Sex: Male
  Weight: 89 kg

DRUGS (10)
  1. PANTOPRAZOLE [Suspect]
     Active Substance: PANTOPRAZOLE
     Indication: PRODUCT USED FOR UNKNOWN INDICATION
     Dosage: 50 MILLIGRAM
     Route: 065
  2. PROPOFOL. [Concomitant]
     Active Substance: PROPOFOL
     Dosage: 240 MILLIGRAM
     Route: 065
  3. MIDAZOLAM. [Concomitant]
     Active Substance: MIDAZOLAM
     Dosage: 5 MILLIGRAM
     Route: 042
  4. MIDAZOLAM. [Concomitant]
     Active Substance: MIDAZOLAM
     Indication: PRODUCT USED FOR UNKNOWN INDICATION
     Dosage: 5 MILLIGRAM
     Route: 042
  5. FENTANYL. [Suspect]
     Active Substance: FENTANYL
     Indication: PRODUCT USED FOR UNKNOWN INDICATION
     Dosage: 100 MICROGRAM
     Route: 065
  6. FLUOXETINE [Suspect]
     Active Substance: FLUOXETINE HYDROCHLORIDE
     Indication: PRODUCT USED FOR UNKNOWN INDICATION
     Dosage: 40 MILLIGRAM
     Route: 065
  7. TRAZODONE [Suspect]
     Active Substance: TRAZODONE HYDROCHLORIDE
     Indication: PRODUCT USED FOR UNKNOWN INDICATION
     Dosage: 50 MILLIGRAM
     Route: 065
  8. PROPOFOL. [Concomitant]
     Active Substance: PROPOFOL
     Indication: PRODUCT USED FOR UNKNOWN INDICATION
     Dosage: 240 MILLIGRAM
     Route: 065
  9. PANTOPRAZOLE [Suspect]
     Active Substance: PANTOPRAZOLE
     Dosage: 50 MILLIGRAM
     Route: 065
  10. MIDAZOLAM. [Concomitant]
     Active Substance: MIDAZOLAM
     Dosage: 2 MILLIGRAM
     Route: 065

REACTIONS (3)
  - Serotonin syndrome [Recovered/Resolved]
  - Myoclonus [Recovered/Resolved]
  - Toxicity to various agents [Recovered/Resolved]
